FAERS Safety Report 24126157 (Version 1)
Quarter: 2024Q3

REPORT INFORMATION
  Report Type: Spontaneous
  Country: AT (occurrence: AT)
  Receive Date: 20240723
  Receipt Date: 20240723
  Transmission Date: 20241016
  Serious: Yes (Other)
  Sender: REGENERON
  Company Number: AT-BAYER-2024A105416

PATIENT
  Age: 76 Year
  Sex: Female

DRUGS (2)
  1. EYLEA [Suspect]
     Active Substance: AFLIBERCEPT
     Indication: Age-related macular degeneration
     Dosage: SOLUTION FOR INJECTION, 40 MG/ML
  2. EYLEA HD [Suspect]
     Active Substance: AFLIBERCEPT
     Indication: Age-related macular degeneration
     Dosage: UNK, SOLUTION FOR INJECTION, 114.3 MG/ML
     Dates: start: 2024

REACTIONS (4)
  - Macular oedema [Unknown]
  - Oedema [Unknown]
  - Retinal neovascularisation [Unknown]
  - Retinal haemorrhage [Unknown]
